FAERS Safety Report 13743040 (Version 2)
Quarter: 2017Q3

REPORT INFORMATION
  Report Type: Report from Study
  Country: None (occurrence: JP)
  Receive Date: 20170711
  Receipt Date: 20170727
  Transmission Date: 20171127
  Serious: Yes (Hospitalization)
  Sender: FDA-Public Use
  Company Number: JP-ABBVIE-17P-087-2029028-00

PATIENT
  Age: 48 Year
  Sex: Male
  Weight: 83.8 kg

DRUGS (22)
  1. TRAMAL OD TABLET [Concomitant]
     Active Substance: TRAMADOL HYDROCHLORIDE
     Route: 048
     Dates: start: 20170404
  2. TAKECAB TABLET [Concomitant]
     Indication: GASTRITIS
     Route: 048
     Dates: start: 2016
  3. CELECOX TABLETS [Concomitant]
     Indication: BACK PAIN
     Route: 048
     Dates: start: 20170124
  4. PREDONINE [Concomitant]
     Active Substance: PREDNISOLONE
     Route: 048
     Dates: start: 20170426, end: 20170511
  5. BONVIVA TABLET [Concomitant]
     Indication: OSTEOPOROSIS
     Route: 048
     Dates: start: 20170519
  6. TRAMAL OD TABLET [Concomitant]
     Active Substance: TRAMADOL HYDROCHLORIDE
     Indication: BACK PAIN
     Route: 048
     Dates: start: 20170131, end: 20170403
  7. AZANIN [Concomitant]
     Active Substance: AZATHIOPRINE
     Indication: COLITIS ULCERATIVE
     Route: 048
     Dates: start: 20170131
  8. OLMETEC OD TABLETS [Concomitant]
     Indication: HYPERTENSION
     Route: 048
     Dates: start: 2016, end: 20170321
  9. OLMETEC OD TABLETS [Concomitant]
     Route: 048
     Dates: start: 20170322
  10. PREDONINE [Concomitant]
     Active Substance: PREDNISOLONE
     Route: 048
     Dates: start: 20170524, end: 20170606
  11. ASACOL [Concomitant]
     Active Substance: MESALAMINE
     Indication: COLITIS ULCERATIVE
     Route: 048
     Dates: start: 2015
  12. XALATAN [Concomitant]
     Active Substance: LATANOPROST
     Indication: GLAUCOMA
     Route: 047
     Dates: start: 20170421
  13. HYALEIN [Concomitant]
     Active Substance: HYALURONATE SODIUM
     Indication: GLAUCOMA
     Route: 047
     Dates: start: 20170421
  14. HUMIRA [Suspect]
     Active Substance: ADALIMUMAB
     Indication: COLITIS ULCERATIVE
     Route: 058
     Dates: start: 20170314, end: 20170404
  15. LOQOA TAPE [Concomitant]
     Indication: SPINAL COMPRESSION FRACTURE
     Route: 061
     Dates: start: 20170519
  16. PREDONINE [Concomitant]
     Active Substance: PREDNISOLONE
     Route: 048
     Dates: start: 20170607
  17. SODIUM FERROUS CITRATE [Concomitant]
     Active Substance: SODIUM FERROUS CITRATE
     Indication: COLITIS ULCERATIVE
     Route: 048
     Dates: start: 20170131
  18. HUMIRA [Suspect]
     Active Substance: ADALIMUMAB
     Route: 058
     Dates: start: 20170411
  19. PREDONINE [Concomitant]
     Active Substance: PREDNISOLONE
     Indication: COLITIS ULCERATIVE
     Route: 048
     Dates: start: 20170114, end: 20170411
  20. PREDONINE [Concomitant]
     Active Substance: PREDNISOLONE
     Route: 048
     Dates: start: 20170512, end: 20170523
  21. MIYA-BM [Concomitant]
     Active Substance: CLOSTRIDIUM BUTYRICUM SPORES STRAIN M-55
     Indication: COLITIS ULCERATIVE
     Route: 048
     Dates: start: 20170124
  22. PREDONINE [Concomitant]
     Active Substance: PREDNISOLONE
     Route: 048
     Dates: start: 20170412, end: 20170425

REACTIONS (1)
  - Altered state of consciousness [Recovered/Resolved]

NARRATIVE: CASE EVENT DATE: 20170701
